FAERS Safety Report 8457781-X (Version None)
Quarter: 2012Q2

REPORT INFORMATION
  Report Type: 
  Country: None (occurrence: None)
  Receive Date: 20120323
  Receipt Date: 20111111
  Transmission Date: 20120825
  Serious: Yes (Other)
  Sender: FDA-Public Use
  Company Number: 163-21880-11081401

PATIENT
  Age: 73 Year
  Sex: Female

DRUGS (9)
  1. KLOR-CON [Concomitant]
  2. HYDROCHLOROTHIAZIDE [Concomitant]
  3. NIFEDIPINE [Concomitant]
  4. PROTONIX [Concomitant]
  5. LYRICA [Concomitant]
  6. COZAAR [Concomitant]
  7. LENALIDOMIDE [Suspect]
     Indication: MULTIPLE MYELOMA
     Dosage: 25 MG, DAILY X 21 DAYS,PO
     Route: 048
     Dates: start: 20110617
  8. COUMADIN [Concomitant]
  9. FERROUS SULFATE CR (FERROUS SULFATE) [Concomitant]

REACTIONS (4)
  - BLOOD CALCIUM DECREASED [None]
  - DEHYDRATION [None]
  - ANAEMIA [None]
  - NEUTROPENIA [None]
